FAERS Safety Report 18299568 (Version 1)
Quarter: 2020Q3

REPORT INFORMATION
  Report Type: Spontaneous
  Country: US (occurrence: US)
  Receive Date: 20200922
  Receipt Date: 20200922
  Transmission Date: 20201103
  Serious: No
  Sender: FDA-Public Use
  Company Number: None

PATIENT
  Age: 74 Year
  Sex: Female
  Weight: 58.5 kg

DRUGS (13)
  1. ASPIRIN. [Concomitant]
     Active Substance: ASPIRIN
  2. VITAMIN D [Concomitant]
     Active Substance: VITAMIN D NOS
  3. IBUPROFEN 600 MG [Concomitant]
     Active Substance: IBUPROFEN
  4. IRBESARTAN. [Concomitant]
     Active Substance: IRBESARTAN
  5. SINGULAIR [Concomitant]
     Active Substance: MONTELUKAST SODIUM
  6. PRAVASTATIN. [Concomitant]
     Active Substance: PRAVASTATIN
  7. FLONASE [Concomitant]
     Active Substance: FLUTICASONE PROPIONATE
  8. TOPIRAMATE. [Suspect]
     Active Substance: TOPIRAMATE
     Indication: ESSENTIAL TREMOR
     Dosage: ?          QUANTITY:1 TABLET(S);?
     Route: 048
  9. CINNAMON. [Concomitant]
     Active Substance: CINNAMON
  10. VITAMIN C [Concomitant]
     Active Substance: ASCORBIC ACID
  11. BACLOFEN. [Concomitant]
     Active Substance: BACLOFEN
  12. TURMERIC [Concomitant]
     Active Substance: HERBALS\TURMERIC
  13. MULTIVITAMIN [Concomitant]
     Active Substance: VITAMINS

REACTIONS (4)
  - Arthralgia [None]
  - Dyspnoea [None]
  - Chest pain [None]
  - Chest discomfort [None]

NARRATIVE: CASE EVENT DATE: 20200901
